FAERS Safety Report 4611406-X (Version None)
Quarter: 2005Q1

REPORT INFORMATION
  Report Type: 
  Country: None (occurrence: None)
  Receive Date: 20050315
  Receipt Date: 20050315
  Transmission Date: 20050727
  Serious: No
  Sender: FDA-Public Use
  Company Number: None

PATIENT
  Sex: Male
  Weight: 55.45 kg

DRUGS (4)
  1. FLUOROURACIL [Suspect]
     Dates: start: 20050105
  2. LEUCOVORIN [Suspect]
     Dates: start: 20050105
  3. RADIOTHERAPY [Suspect]
     Dosage: 2632 CGY EXTERNAL BEAM NOS
     Dates: start: 20050105
  4. COUMADIN [Concomitant]

REACTIONS (1)
  - INTERNATIONAL NORMALISED RATIO INCREASED [None]
